FAERS Safety Report 8158785-7 (Version None)
Quarter: 2012Q1

REPORT INFORMATION
  Report Type: 
  Country: None (occurrence: None)
  Receive Date: 20120217
  Receipt Date: 20120208
  Transmission Date: 20120608
  Serious: Yes (Other)
  Sender: FDA-Public Use
  Company Number: 2012SP007390

PATIENT

DRUGS (2)
  1. INTERFERON ALFA-2B RECOMBINANT (INTERFERON ALFA-2B) [Suspect]
     Indication: HEPATITIS C
     Dosage: ;SC
     Route: 058
  2. RIBAVIRIN [Suspect]
     Indication: HEPATITIS C

REACTIONS (1)
  - UPPER RESPIRATORY TRACT INFECTION [None]
